FAERS Safety Report 13323139 (Version 12)
Quarter: 2018Q2

REPORT INFORMATION
  Report Type: Report from Study
  Country: CA (occurrence: CA)
  Receive Date: 20170310
  Receipt Date: 20180620
  Transmission Date: 20180711
  Serious: Yes (Other)
  Sender: FDA-Public Use
  Company Number: CA-BRISTOL-MYERS SQUIBB COMPANY-BMS-2017-020712

PATIENT
  Age: 74 Year
  Sex: Female
  Weight: 58.9 kg

DRUGS (1)
  1. ABATACEPT [Suspect]
     Active Substance: ABATACEPT
     Indication: RHEUMATOID ARTHRITIS
     Dosage: 750 MG, Q4WK
     Route: 042
     Dates: start: 20090825

REACTIONS (21)
  - Oedema [Recovering/Resolving]
  - Dysuria [Unknown]
  - Herpes zoster [Recovering/Resolving]
  - Nasal operation [Recovering/Resolving]
  - Pyrexia [Unknown]
  - Oropharyngeal pain [Unknown]
  - Feeding disorder [Unknown]
  - Nasopharyngitis [Unknown]
  - Pain [Unknown]
  - Discomfort [Unknown]
  - Basal cell carcinoma [Unknown]
  - Weight decreased [Unknown]
  - Dysphonia [Unknown]
  - Influenza [Not Recovered/Not Resolved]
  - Urinary tract infection [Recovering/Resolving]
  - Bladder prolapse [Unknown]
  - Rhinorrhoea [Unknown]
  - Malignant melanoma [Unknown]
  - Cough [Unknown]
  - Productive cough [Unknown]
  - Hypersensitivity [Recovering/Resolving]

NARRATIVE: CASE EVENT DATE: 20170731
